FAERS Safety Report 7780113-7 (Version None)
Quarter: 2011Q3

REPORT INFORMATION
  Report Type: 
  Country: None (occurrence: None)
  Receive Date: 20110927
  Receipt Date: 20110718
  Transmission Date: 20111222
  Serious: No
  Sender: FDA-Public Use
  Company Number: US-ASTRAZENECA-2011SE42720

PATIENT
  Sex: Female

DRUGS (4)
  1. EFFEXOR [Concomitant]
  2. LAMICTAL [Concomitant]
  3. SEROQUEL XR [Suspect]
     Indication: BIPOLAR DISORDER
     Dosage: 50 MG AM, 100 MG IN AFTERNOON AND 200 MG HS (THREE TIMES A DAY)
     Route: 048
     Dates: start: 20000101
  4. SEROQUEL XR [Suspect]
     Route: 048
     Dates: start: 20000101

REACTIONS (4)
  - AGGRESSION [None]
  - WRONG TECHNIQUE IN DRUG USAGE PROCESS [None]
  - DEPRESSION [None]
  - DRUG DOSE OMISSION [None]
